FAERS Safety Report 7772249-1 (Version None)
Quarter: 2011Q3

REPORT INFORMATION
  Report Type: 
  Country: None (occurrence: None)
  Receive Date: 20110922
  Receipt Date: 20101109
  Transmission Date: 20111222
  Serious: No
  Sender: FDA-Public Use
  Company Number: US-ASTRAZENECA-2010SE53845

PATIENT
  Age: 51 Year
  Sex: Male

DRUGS (7)
  1. SEROQUEL [Suspect]
     Route: 048
     Dates: start: 20101001, end: 20101001
  2. SEROQUEL [Suspect]
     Route: 048
     Dates: start: 20101001, end: 20101001
  3. SEROQUEL [Suspect]
     Indication: BIPOLAR DISORDER
     Route: 048
     Dates: start: 20100701, end: 20100901
  4. SEROQUEL [Suspect]
     Route: 048
  5. PROZAC [Concomitant]
  6. LITHIUM [Concomitant]
  7. SEROQUEL [Suspect]
     Route: 048
     Dates: start: 20101001, end: 20101101

REACTIONS (7)
  - VOMITING [None]
  - DRUG DOSE OMISSION [None]
  - INCORRECT DOSE ADMINISTERED [None]
  - NAUSEA [None]
  - INSOMNIA [None]
  - FEELING ABNORMAL [None]
  - SOMNOLENCE [None]
